FAERS Safety Report 10051405 (Version 1)
Quarter: 2014Q2

REPORT INFORMATION
  Report Type: Spontaneous
  Country: US (occurrence: US)
  Receive Date: 20140401
  Receipt Date: 20140401
  Transmission Date: 20141212
  Serious: No
  Sender: FDA-Public Use
  Company Number: US-PFIZER INC-2014090307

PATIENT
  Age: 53 Year
  Sex: Female
  Weight: 111 kg

DRUGS (1)
  1. PREMARIN [Suspect]
     Indication: VULVOVAGINAL DRYNESS
     Dosage: 0.5 MG, 2X/WEEK
     Route: 067
     Dates: start: 20140316

REACTIONS (1)
  - Insomnia [Unknown]
